FAERS Safety Report 5893729-X (Version None)
Quarter: 2008Q3

REPORT INFORMATION
  Report Type: 
  Country: None (occurrence: None)
  Receive Date: 20080923
  Receipt Date: 20080908
  Transmission Date: 20090109
  Serious: Yes (Other)
  Sender: FDA-Public Use
  Company Number: US-GENENTECH-267659

PATIENT
  Age: 34 Year
  Sex: Female

DRUGS (12)
  1. RITUXAN [Suspect]
     Indication: MYOSITIS
     Dosage: 1000 MG, X2
     Dates: start: 20060101
  2. RITUXAN [Suspect]
     Dosage: 750 MG, X2
  3. METHOTREXATE [Suspect]
     Indication: MYOSITIS
     Dosage: 35 MG, 1/WEEK
     Dates: start: 19970101
  4. METHOTREXATE [Suspect]
     Dosage: 25 MG, 1/WEEK
     Route: 030
     Dates: start: 20010101
  5. PREDNISONE [Suspect]
     Indication: MYOSITIS
     Dosage: 60 MG, QD
     Dates: start: 19970101
  6. PREDNISONE [Suspect]
     Dosage: 5 MG, QD
  7. PREDNISONE [Suspect]
     Dosage: 10 MG, QD
  8. PREDNISONE [Suspect]
     Dosage: 7.5 MG, QD
  9. PREDNISONE [Suspect]
     Dosage: 2.5 MG, QD
  10. AZATHIOPRINE [Concomitant]
     Indication: DRUG USE FOR UNKNOWN INDICATION
     Dosage: UNK
     Dates: start: 19970101, end: 20060101
  11. AZATHIOPRINE [Concomitant]
     Dosage: UNK MG, UNK
  12. RIFAMPIN [Suspect]
     Indication: DRUG USE FOR UNKNOWN INDICATION
     Dosage: UNK

REACTIONS (2)
  - MYCOBACTERIAL INFECTION [None]
  - THROMBOCYTOPENIA [None]
